FAERS Safety Report 7500676-6 (Version None)
Quarter: 2011Q2

REPORT INFORMATION
  Report Type: 
  Country: None (occurrence: None)
  Receive Date: 20110524
  Receipt Date: 20110520
  Transmission Date: 20111010
  Serious: Yes (Hospitalization, Other)
  Sender: FDA-Public Use
  Company Number: US-MERCK-0805USA00696

PATIENT
  Age: 48 Year
  Sex: Female

DRUGS (2)
  1. FOSAMAX [Suspect]
     Route: 048
     Dates: end: 20070101
  2. FOSAMAX [Suspect]
     Indication: OSTEOPOROSIS
     Route: 048
     Dates: start: 20010101, end: 20050901

REACTIONS (45)
  - BREAST CANCER FEMALE [None]
  - WEIGHT INCREASED [None]
  - SLEEP DISORDER [None]
  - BACK PAIN [None]
  - DRUG HYPERSENSITIVITY [None]
  - INFLAMMATORY BOWEL DISEASE [None]
  - FIBROMYALGIA [None]
  - IRRITABILITY [None]
  - BRONCHITIS [None]
  - OSTEONECROSIS OF JAW [None]
  - TRISMUS [None]
  - PALPITATIONS [None]
  - TEMPOROMANDIBULAR JOINT SYNDROME [None]
  - GINGIVAL PAIN [None]
  - EDENTULOUS [None]
  - ASTHENIA [None]
  - TOOTH DISORDER [None]
  - STRESS [None]
  - DIZZINESS [None]
  - BACK DISORDER [None]
  - PNEUMONIA [None]
  - MULTIPLE SCLEROSIS [None]
  - ORAL DISCOMFORT [None]
  - TOOTH ABSCESS [None]
  - OVERDOSE [None]
  - MYOFASCIAL PAIN SYNDROME [None]
  - MAJOR DEPRESSION [None]
  - ANXIETY [None]
  - DYSPNOEA [None]
  - JOINT RANGE OF MOTION DECREASED [None]
  - TOOTH FRACTURE [None]
  - PANIC ATTACK [None]
  - OBSESSIVE-COMPULSIVE DISORDER [None]
  - DENTAL CARIES [None]
  - MASTICATION DISORDER [None]
  - SUICIDAL IDEATION [None]
  - DEPRESSION [None]
  - LUNG NEOPLASM [None]
  - WEIGHT DECREASED [None]
  - RHEUMATOID ARTHRITIS [None]
  - DRY MOUTH [None]
  - INTERVERTEBRAL DISC PROTRUSION [None]
  - EATING DISORDER [None]
  - TOOTH LOSS [None]
  - BODY DYSMORPHIC DISORDER [None]
